FAERS Safety Report 21976524 (Version 2)
Quarter: 2023Q1

REPORT INFORMATION
  Report Type: Spontaneous
  Country: US (occurrence: US)
  Receive Date: 20230210
  Receipt Date: 20230302
  Transmission Date: 20230418
  Serious: No
  Sender: FDA-Public Use
  Company Number: US-PFIZER INC-PV202300023837

PATIENT
  Age: 12 Year
  Sex: Male

DRUGS (2)
  1. GENOTROPIN [Suspect]
     Active Substance: SOMATROPIN
     Dosage: 1.1 MG
     Dates: start: 20230128
  2. GENOTROPIN [Suspect]
     Active Substance: SOMATROPIN
     Dosage: 1MG ALTERNATING WITH 1.2MG

REACTIONS (3)
  - Wrong technique in device usage process [Unknown]
  - Device leakage [Unknown]
  - Product prescribing error [Unknown]

NARRATIVE: CASE EVENT DATE: 20230101
